FAERS Safety Report 10146147 (Version 1)
Quarter: 2014Q2

REPORT INFORMATION
  Report Type: Spontaneous
  Country: NL (occurrence: None)
  Receive Date: 20140429
  Receipt Date: 20140429
  Transmission Date: 20141212
  Serious: Yes (Death, Hospitalization)
  Sender: FDA-Public Use
  Company Number: 2014P1003358

PATIENT
  Age: 69 Year
  Sex: Male

DRUGS (7)
  1. HEPARIN [Suspect]
     Indication: CARDIAC FAILURE ACUTE
  2. HEPARIN [Suspect]
     Indication: ISCHAEMIA
  3. ASPIRIN [Suspect]
     Indication: CARDIAC FAILURE ACUTE
  4. ASPIRIN [Suspect]
     Indication: ISCHAEMIA
  5. PRASUGREL [Suspect]
     Indication: CARDIAC FAILURE ACUTE
  6. PRASUGREL [Suspect]
     Indication: ISCHAEMIA
  7. CLOPIDOGREL [Suspect]
     Indication: CORONARY ARTERY DISEASE

REACTIONS (3)
  - Bradycardia [None]
  - Pulmonary alveolar haemorrhage [None]
  - Respiratory failure [None]
